FAERS Safety Report 8557440-9 (Version None)
Quarter: 2012Q3

REPORT INFORMATION
  Report Type: 
  Country: None (occurrence: None)
  Receive Date: 20120801
  Receipt Date: 20120725
  Transmission Date: 20120928
  Serious: Yes (Life-Threatening, Hospitalization)
  Sender: FDA-Public Use
  Company Number: US-ELI_LILLY_AND_COMPANY-US201207008492

PATIENT
  Sex: Male

DRUGS (9)
  1. TRIBENZOR [Concomitant]
  2. HUMALOG [Suspect]
     Indication: TYPE 2 DIABETES MELLITUS
     Dosage: 6 U, QD
     Dates: start: 20120610
  3. ACTOS [Concomitant]
  4. HUMALOG [Suspect]
     Dosage: 12 U, QD
     Dates: start: 20120610
  5. GLYBURIDE [Concomitant]
  6. HUMALOG [Suspect]
     Dosage: 10 U, QD
     Dates: start: 20120610
  7. METOPROLOL TARTRATE [Concomitant]
  8. LEVAQUIN [Concomitant]
  9. ORAL ANTIDIABETICS [Concomitant]

REACTIONS (4)
  - RASH PRURITIC [None]
  - SEPSIS SYNDROME [None]
  - BLOOD GLUCOSE INCREASED [None]
  - CUTANEOUS VASCULITIS [None]
